FAERS Safety Report 16029521 (Version 1)
Quarter: 2019Q1

REPORT INFORMATION
  Report Type: Spontaneous
  Country: US (occurrence: US)
  Receive Date: 20190304
  Receipt Date: 20190304
  Transmission Date: 20190418
  Serious: No
  Sender: FDA-Public Use
  Company Number: US-IMPAX LABORATORIES, LLC-2018-IPXL-01552

PATIENT
  Age: 68 Year
  Sex: Female

DRUGS (3)
  1. RYTARY [Suspect]
     Active Substance: CARBIDOPA\LEVODOPA
     Indication: PARKINSON^S DISEASE
     Dosage: 48.75/195 MG, 2 CAPSULES 5 TIMES DAILY(6AM, 10AM, 2PM, 6PM, BEDTIME)
     Route: 048
     Dates: start: 201511
  2. ENTACAPONE. [Suspect]
     Active Substance: ENTACAPONE
     Indication: PARKINSON^S DISEASE
     Dosage: 100 MG, UNK
     Route: 065
  3. CARBIDOPA-LEVODOPA ER [Suspect]
     Active Substance: CARBIDOPA\LEVODOPA
     Indication: PARKINSON^S DISEASE
     Dosage: UNK
     Route: 065

REACTIONS (15)
  - Dyskinesia [Not Recovered/Not Resolved]
  - Insomnia [Unknown]
  - Rhinorrhoea [Recovered/Resolved]
  - Secretion discharge [Unknown]
  - Drooling [Recovering/Resolving]
  - Dysphagia [Unknown]
  - Orthostatic hypotension [Recovered/Resolved]
  - Drug effect delayed [Unknown]
  - Pruritus [Unknown]
  - Drug ineffective [Recovered/Resolved]
  - Therapeutic response shortened [Not Recovered/Not Resolved]
  - Dyspnoea [Not Recovered/Not Resolved]
  - Malaise [Unknown]
  - Hallucination, visual [Recovered/Resolved]
  - Freezing phenomenon [Not Recovered/Not Resolved]

NARRATIVE: CASE EVENT DATE: 201511
